FAERS Safety Report 13314171 (Version 1)
Quarter: 2017Q1

REPORT INFORMATION
  Report Type: Spontaneous
  Country: US (occurrence: US)
  Receive Date: 20170309
  Receipt Date: 20170309
  Transmission Date: 20170428
  Serious: No
  Sender: FDA-Public Use
  Company Number: US-TURING PHARMACEUTICALS-2016TNG00030

PATIENT
  Age: 35 Year
  Sex: Female
  Weight: 63.39 kg

DRUGS (8)
  1. PREDNISONE. [Concomitant]
     Active Substance: PREDNISONE
  2. VYVANSE [Concomitant]
     Active Substance: LISDEXAMFETAMINE DIMESYLATE
  3. 2 UNSPECIFIED MEDICATIONS FOR A POSITIVE TB TEST [Concomitant]
  4. SULFADIAZINE. [Concomitant]
     Active Substance: SULFADIAZINE
  5. PYRIDOXINE [Concomitant]
     Active Substance: PYRIDOXINE
  6. DARAPRIM [Suspect]
     Active Substance: PYRIMETHAMINE
     Indication: TOXOPLASMOSIS
     Dosage: 75 MG, 1X/DAY
     Route: 048
     Dates: start: 20160610
  7. FOLIC ACID. [Concomitant]
     Active Substance: FOLIC ACID
  8. ISONIAZID. [Concomitant]
     Active Substance: ISONIAZID

REACTIONS (1)
  - Mood altered [Unknown]

NARRATIVE: CASE EVENT DATE: 201606
